FAERS Safety Report 7752234-6 (Version None)
Quarter: 2011Q3

REPORT INFORMATION
  Report Type: 
  Country: None (occurrence: None)
  Receive Date: 20110915
  Receipt Date: 20110912
  Transmission Date: 20111222
  Serious: Yes (Hospitalization, Other)
  Sender: FDA-Public Use
  Company Number: US-TEVA-298938USA

PATIENT
  Age: 44 Year
  Sex: Male

DRUGS (5)
  1. METOPROLOL TARTRATE [Concomitant]
  2. GABAPENTIN [Suspect]
  3. LORATADINE [Concomitant]
  4. HYDROXYZINE [Concomitant]
  5. TRAMADOL HCL [Suspect]

REACTIONS (10)
  - GASTRIC HAEMORRHAGE [None]
  - CHEST PAIN [None]
  - VOMITING [None]
  - OESOPHAGEAL HAEMORRHAGE [None]
  - DECREASED APPETITE [None]
  - HAEMATOCHEZIA [None]
  - HAEMATEMESIS [None]
  - ABDOMINAL PAIN UPPER [None]
  - DRUG ADMINISTRATION ERROR [None]
  - EROSIVE OESOPHAGITIS [None]
